FAERS Safety Report 20444308 (Version 3)
Quarter: 2022Q3

REPORT INFORMATION
  Report Type: Spontaneous
  Country: US (occurrence: US)
  Receive Date: 20220208
  Receipt Date: 20220706
  Transmission Date: 20221027
  Serious: Yes (Other)
  Sender: FDA-Public Use
  Company Number: US-PFIZER INC-202200158217

PATIENT
  Age: 50 Year
  Sex: Female

DRUGS (15)
  1. IBRANCE [Suspect]
     Active Substance: PALBOCICLIB
     Indication: Breast cancer
     Dosage: 125 MG, CYCLIC (DAILY FOR 21 DAYS ON AND  7 DAYS OFF)
     Route: 048
     Dates: start: 20220104
  2. IBRANCE [Suspect]
     Active Substance: PALBOCICLIB
     Indication: Metastases to liver
  3. IBRANCE [Suspect]
     Active Substance: PALBOCICLIB
     Indication: Bile duct cancer
  4. IBRANCE [Suspect]
     Active Substance: PALBOCICLIB
     Indication: Lymphadenopathy
  5. VITAMIN B6 [Concomitant]
     Active Substance: PYRIDOXINE HYDROCHLORIDE
     Dosage: UNK
  6. FASLODEX [Concomitant]
     Active Substance: FULVESTRANT
     Dosage: UNK
  7. CEFIXIME [Concomitant]
     Active Substance: CEFIXIME
     Dosage: UNK
  8. LOPERAMIDE HYDROCHLORIDE [Concomitant]
     Active Substance: LOPERAMIDE HYDROCHLORIDE
     Dosage: UNK
  9. GABAPENTIN [Concomitant]
     Active Substance: GABAPENTIN
     Dosage: UNK
  10. IMODIUM [Concomitant]
     Active Substance: LOPERAMIDE HYDROCHLORIDE
     Dosage: UNK
  11. ATIVAN [Concomitant]
     Active Substance: LORAZEPAM
     Dosage: UNK
  12. NORTRIPTYLINE [Concomitant]
     Active Substance: NORTRIPTYLINE
     Dosage: UNK
  13. ZOFRAN [Concomitant]
     Active Substance: ONDANSETRON HYDROCHLORIDE
     Dosage: UNK
  14. OMEPRAZOLE [Concomitant]
     Active Substance: OMEPRAZOLE
     Dosage: UNK
  15. PROCHLORPERAZINE EDISYLATE [Concomitant]
     Active Substance: PROCHLORPERAZINE EDISYLATE
     Dosage: UNK

REACTIONS (27)
  - Neuropathy peripheral [Not Recovered/Not Resolved]
  - Neutrophil count decreased [Unknown]
  - Pain in extremity [Unknown]
  - Arthralgia [Unknown]
  - Back pain [Unknown]
  - Fatigue [Unknown]
  - Cognitive disorder [Unknown]
  - Disturbance in attention [Unknown]
  - Eating disorder [Unknown]
  - Decreased appetite [Unknown]
  - Taste disorder [Unknown]
  - Epistaxis [Unknown]
  - Vomiting [Unknown]
  - Balance disorder [Unknown]
  - Dyspnoea [Unknown]
  - Headache [Unknown]
  - Bone pain [Unknown]
  - Asthenia [Unknown]
  - Palmar-plantar erythrodysaesthesia syndrome [Not Recovered/Not Resolved]
  - Feeling abnormal [Unknown]
  - Full blood count abnormal [Unknown]
  - Lymphoedema [Not Recovered/Not Resolved]
  - Swelling [Unknown]
  - Condition aggravated [Unknown]
  - Diarrhoea [Recovered/Resolved]
  - Dehydration [Unknown]
  - Neoplasm progression [Not Recovered/Not Resolved]
